FAERS Safety Report 5211208-X (Version None)
Quarter: 2006Q4

REPORT INFORMATION
  Report Type: 
  Country: None (occurrence: None)
  Receive Date: 20061114
  Receipt Date: 20060911
  Transmission Date: 20070319
  Serious: No
  Sender: FDA-Public Use
  Company Number: S06-USA-03662-01

PATIENT
  Age: 83 Year
  Sex: Female

DRUGS (4)
  1. NAMENDA [Suspect]
     Dates: start: 20060101
  2. RAZADYNE [Concomitant]
  3. LIPITOR [Concomitant]
  4. ZATADOR (KETOTIFIN) [Concomitant]

REACTIONS (1)
  - DYSURIA [None]
